FAERS Safety Report 4466044-9 (Version None)
Quarter: 2004Q3

REPORT INFORMATION
  Report Type: 
  Country: None (occurrence: None)
  Receive Date: 20040930
  Receipt Date: 20040920
  Transmission Date: 20050211
  Serious: Yes (Hospitalization)
  Sender: FDA-Public Use
  Company Number: STA-AE-04-MTX-430

PATIENT
  Age: 61 Year
  Sex: Female

DRUGS (24)
  1. RHEUMATREX [Suspect]
     Indication: RHEUMATOID ARTHRITIS
     Dosage: 4 MG 1X PER 1 WK, ORAL
     Route: 048
     Dates: start: 20020921, end: 20021011
  2. RHEUMATREX [Suspect]
     Indication: RHEUMATOID ARTHRITIS
     Dosage: 6.25 MG 1X PER 1 WK, ORAL
     Route: 048
     Dates: start: 20021012, end: 20021018
  3. RHEUMATREX [Suspect]
     Indication: RHEUMATOID ARTHRITIS
     Dosage: 4 MG 1X PER 1 WK, ORAL
     Route: 048
     Dates: start: 20021112, end: 20021118
  4. RHEUMATREX [Suspect]
     Indication: RHEUMATOID ARTHRITIS
     Dosage: 6 MG 1X PER 1 WK, ORAL
     Route: 048
     Dates: start: 20021119, end: 20021125
  5. RHEUMATREX [Suspect]
     Indication: RHEUMATOID ARTHRITIS
     Dosage: 8 MG 1X PER 1 WK, ORAL
     Route: 048
     Dates: start: 20021126, end: 20021205
  6. RHEUMATREX [Suspect]
     Indication: RHEUMATOID ARTHRITIS
     Dosage: 6 MG 1X PER 1 WK, ORAL
     Route: 048
     Dates: start: 20021206, end: 20021212
  7. RHEUMATREX [Suspect]
     Indication: RHEUMATOID ARTHRITIS
     Dosage: 6 MG 1X PER 1 WK, ORAL
     Route: 048
     Dates: start: 20030428, end: 20040105
  8. REMICADE [Suspect]
     Indication: RHEUMATOID ARTHRITIS
     Dosage: 3 MG/KG 1X PER 1 DAY, INTRAVENOUS
     Route: 042
     Dates: start: 20031010, end: 20031010
  9. REMICADE [Suspect]
     Indication: RHEUMATOID ARTHRITIS
     Dosage: 3 MG/KG 1X PER 1 DAY, INTRAVENOUS
     Route: 042
     Dates: start: 20031024, end: 20031024
  10. REMICADE [Suspect]
     Indication: RHEUMATOID ARTHRITIS
     Dosage: 3 MG/KG 1X PER 1 DAY, INTRAVENOUS
     Route: 042
     Dates: start: 20031121, end: 20031121
  11. ISONIAZID [Concomitant]
  12. KAMAG G (MAGNESIUM OXIDE) [Concomitant]
  13. LOXONIN (LOXOPROFEN SODIUM) [Concomitant]
  14. LOXONIN (LOXOPROFEN SODIUM) [Concomitant]
  15. FOLIC ACID [Concomitant]
  16. PEDNISOLONE (PREDNISOLONE) [Concomitant]
  17. AMLODIPINE BESYLATE [Concomitant]
  18. FERROMIA (FERROUS CITRATE) [Concomitant]
  19. SEDIEL (TANDOSPIRONE CITRATE) [Concomitant]
  20. MILNACIPRAN (MILNACIPRAN) [Concomitant]
  21. PROMAC (POLAPREZINC) [Concomitant]
  22. ERISPAN (FLUDIAZEPAM) [Concomitant]
  23. BLOPRESS (CANDESARTAN CILEXETIL) [Concomitant]
  24. TINELAC (SENNOSIDE A+B) [Concomitant]

REACTIONS (4)
  - ARTHRALGIA [None]
  - CYTOMEGALOVIRUS INFECTION [None]
  - INTERSTITIAL LUNG DISEASE [None]
  - MALAISE [None]
